FAERS Safety Report 7331220-4 (Version None)
Quarter: 2011Q1

REPORT INFORMATION
  Report Type: 
  Country: None (occurrence: None)
  Receive Date: 20110304
  Receipt Date: 20110224
  Transmission Date: 20110831
  Serious: Yes (Other)
  Sender: FDA-Public Use
  Company Number: US-PFIZER INC-2011036781

PATIENT
  Sex: Female
  Weight: 104 kg

DRUGS (2)
  1. ZOLOFT [Suspect]
     Dosage: 200 MG, 1X/DAY
     Route: 048
     Dates: end: 20090101
  2. ZOLOFT [Suspect]
     Indication: DEPRESSION
     Dosage: 50 MG, 1X/DAY
     Route: 048
     Dates: start: 20030101, end: 20030101

REACTIONS (17)
  - NIGHT SWEATS [None]
  - LOSS OF LIBIDO [None]
  - SUICIDAL IDEATION [None]
  - DISSOCIATION [None]
  - INSOMNIA [None]
  - NIGHTMARE [None]
  - ALOPECIA [None]
  - DEPRESSED MOOD [None]
  - HEADACHE [None]
  - MUSCLE TWITCHING [None]
  - GASTROINTESTINAL DISORDER [None]
  - SOCIAL AVOIDANT BEHAVIOUR [None]
  - PHOBIA [None]
  - PERSONALITY DISORDER [None]
  - TREMOR [None]
  - WEIGHT INCREASED [None]
  - FEELING ABNORMAL [None]
